FAERS Safety Report 17084586 (Version 1)
Quarter: 2019Q4

REPORT INFORMATION
  Report Type: Spontaneous
  Country: RU (occurrence: RU)
  Receive Date: 20191127
  Receipt Date: 20191127
  Transmission Date: 20200122
  Serious: Yes (Other)
  Sender: FDA-Public Use
  Company Number: RU-009507513-1911RUS010343

PATIENT
  Age: 66 Year
  Sex: Female
  Weight: 74 kg

DRUGS (4)
  1. ONDANSETRON [Suspect]
     Active Substance: ONDANSETRON
     Indication: PREMEDICATION
     Dosage: 360 MILLIGRAM
     Route: 042
     Dates: start: 20190709, end: 20190709
  2. ALKERAN [Suspect]
     Active Substance: MELPHALAN
     Indication: PREMEDICATION
     Dosage: 360 MILLIGRAM
     Route: 042
     Dates: start: 20190709, end: 20190709
  3. EMEND (FOSAPREPITANT DIMEGLUMINE) [Suspect]
     Active Substance: FOSAPREPITANT DIMEGLUMINE
     Indication: PREMEDICATION
     Dosage: 360 MILLIGRAM
     Route: 042
     Dates: start: 20190709, end: 20190709
  4. DEXAMETHASONE. [Concomitant]
     Active Substance: DEXAMETHASONE
     Dosage: UNK
     Route: 042
     Dates: start: 20190709, end: 20190709

REACTIONS (4)
  - Muscle spasms [Recovering/Resolving]
  - Encephalopathy [Recovering/Resolving]
  - Speech disorder [Recovering/Resolving]
  - Cerebellar ataxia [Recovering/Resolving]

NARRATIVE: CASE EVENT DATE: 20190710
